FAERS Safety Report 9755339 (Version 1)
Quarter: 2013Q4

REPORT INFORMATION
  Report Type: Spontaneous
  Country: US (occurrence: US)
  Receive Date: 20131213
  Receipt Date: 20131213
  Transmission Date: 20140711
  Serious: No
  Sender: FDA-Public Use
  Company Number: US-GLAXOSMITHKLINE-A1016332A

PATIENT
  Age: 25 Year
  Sex: Female

DRUGS (1)
  1. WALGREENS NICOTINE TRANSDERMAL SYSTEM PATCH CLEAR, 14MG [Suspect]
     Dates: start: 20130228, end: 20130315

REACTIONS (3)
  - Heart rate increased [Recovered/Resolved]
  - Drug administration error [Unknown]
  - Drug ineffective [Unknown]
